FAERS Safety Report 18702203 (Version 3)
Quarter: 2021Q1

REPORT INFORMATION
  Report Type: Spontaneous
  Country: US (occurrence: US)
  Receive Date: 20210105
  Receipt Date: 20210201
  Transmission Date: 20210419
  Serious: Yes (Other)
  Sender: FDA-Public Use
  Company Number: US-009507513-2101USA000313

PATIENT
  Age: 58 Year

DRUGS (1)
  1. ISENTRESS [Suspect]
     Active Substance: RALTEGRAVIR POTASSIUM
     Dosage: FOUR TABLETS, TWICE DAILY

REACTIONS (3)
  - Incorrect route of product administration [Unknown]
  - Incorrect product formulation administered [Unknown]
  - Dysphagia [Unknown]

NARRATIVE: CASE EVENT DATE: 20201230
